FAERS Safety Report 19024526 (Version 5)
Quarter: 2021Q2

REPORT INFORMATION
  Report Type: Spontaneous
  Country: GB (occurrence: GB)
  Receive Date: 20210317
  Receipt Date: 20210506
  Transmission Date: 20210717
  Serious: Yes (Hospitalization, Other)
  Sender: FDA-Public Use
  Company Number: GB-BAXTER-2021BAX005270

PATIENT
  Age: 48 Year
  Sex: Female
  Weight: 51.4 kg

DRUGS (15)
  1. GLUCOSE 5% INTRAVENOUS INFUSION BP [Suspect]
     Active Substance: DEXTROSE
     Indication: MEDICATION DILUTION
     Dosage: FIRST 3 CYCLES; CAELYX + 5% GLUCOSE
     Route: 065
  2. ONDANSETRON [Suspect]
     Active Substance: ONDANSETRON
     Indication: VOMITING
  3. PARACETAMOL [Concomitant]
     Active Substance: ACETAMINOPHEN
     Indication: PAIN
     Dosage: 500 MG?1 G UPTO FOUR TIMES A DAY, AS REQUIRED; NOT KNOWN? LONG TERM
     Route: 048
  4. DOXIL [Suspect]
     Active Substance: DOXORUBICIN HYDROCHLORIDE
     Dosage: 4TH CYCLE; CAELYX 50 MG + 5% GLUCOSE 250 ML OVER 1 HOUR; DOSAGE STRENGTH: 50 MG /25 ML
     Route: 065
     Dates: start: 20210219
  5. GLUCOSE 5% INTRAVENOUS INFUSION BP [Suspect]
     Active Substance: DEXTROSE
     Dosage: 4TH CYCLE; CARBOPLATIN 450 MG + 5% GLUCOSE 545 ML OVER 1 HOUR
     Route: 065
     Dates: start: 20210219
  6. CARBOPLATIN. [Suspect]
     Active Substance: CARBOPLATIN
     Indication: OVARIAN CANCER
     Dosage: FIRST 3 CYCLES; CARBOPLATIN + 5% GLUCOSE
     Route: 065
  7. DOXIL [Suspect]
     Active Substance: DOXORUBICIN HYDROCHLORIDE
     Indication: OVARIAN CANCER
     Dosage: FIRST 3 CYCLES; CAELYX + 5% GLUCOSE; DOSAGE STRENGTH: 50 MG /25 ML
     Route: 065
  8. METOCLOPRAMIDE. [Suspect]
     Active Substance: METOCLOPRAMIDE
     Indication: NAUSEA
     Dosage: UPTO 3 TIMES A DAY, AS REQUIRED
     Route: 048
     Dates: start: 20201113
  9. GLUCOSE 5% INTRAVENOUS INFUSION BP [Suspect]
     Active Substance: DEXTROSE
     Dosage: 4TH CYCLE; CAELYX 50 MG + 5% GLUCOSE 250 ML OVER 1 HOUR
     Route: 065
     Dates: start: 20210219
  10. DEXAMETHASONE. [Suspect]
     Active Substance: DEXAMETHASONE
     Indication: NAUSEA
     Route: 048
     Dates: start: 20210220, end: 20210221
  11. DEXAMETHASONE. [Suspect]
     Active Substance: DEXAMETHASONE
     Indication: VOMITING
  12. CARBOPLATIN. [Suspect]
     Active Substance: CARBOPLATIN
     Dosage: 4TH CYCLE; CARBOPLATIN 450 MG + 5% GLUCOSE 545 ML GIVEN OVER 1 HOUR
     Route: 065
     Dates: start: 20210219
  13. METOCLOPRAMIDE. [Suspect]
     Active Substance: METOCLOPRAMIDE
     Indication: VOMITING
  14. GLUCOSE 5% INTRAVENOUS INFUSION BP [Suspect]
     Active Substance: DEXTROSE
     Dosage: FIRST 3 CYCLES; CARBOPLATIN + 5% GLUCOSE
     Route: 065
  15. ONDANSETRON [Suspect]
     Active Substance: ONDANSETRON
     Indication: NAUSEA
     Route: 048
     Dates: start: 20210220, end: 20210221

REACTIONS (8)
  - Myelosuppression [Unknown]
  - Pancytopenia [Recovering/Resolving]
  - Folate deficiency [Unknown]
  - Thrombocytopenia [Unknown]
  - Mouth ulceration [Unknown]
  - Neutropenic sepsis [Recovering/Resolving]
  - Vitamin B12 deficiency [Unknown]
  - Anaemia [Unknown]

NARRATIVE: CASE EVENT DATE: 202103
